FAERS Safety Report 8360630-1 (Version None)
Quarter: 2012Q2

REPORT INFORMATION
  Report Type: 
  Country: None (occurrence: None)
  Receive Date: 20120515
  Receipt Date: 20120507
  Transmission Date: 20120825
  Serious: Yes (Other)
  Sender: FDA-Public Use
  Company Number: US-BAYER-2012-044993

PATIENT
  Age: 38 Year
  Sex: Female

DRUGS (1)
  1. SAFYRAL [Suspect]
     Indication: CONTRACEPTION
     Route: 048

REACTIONS (3)
  - PULMONARY EMBOLISM [None]
  - CHEST DISCOMFORT [None]
  - ASTHENIA [None]
